FAERS Safety Report 9099529 (Version 1)
Quarter: 2013Q1

REPORT INFORMATION
  Report Type: Spontaneous
  Country: FR (occurrence: FR)
  Receive Date: 20130213
  Receipt Date: 20130213
  Transmission Date: 20140127
  Serious: Yes (Life-Threatening)
  Sender: FDA-Public Use
  Company Number: FR-OTSUKA-US-2013-10232

PATIENT
  Sex: Male

DRUGS (3)
  1. BUSULFEX [Suspect]
     Indication: BONE MARROW CONDITIONING REGIMEN
     Dosage: 402 MG MILLIGRAM(S), UNKNOWN
     Route: 042
     Dates: start: 20121204, end: 20121206
  2. THIOTEPA [Suspect]
     Indication: BONE MARROW CONDITIONING REGIMEN
     Dosage: 525 MG MILLIGRAM(S), UNK
     Route: 040
     Dates: start: 20121201, end: 20121202
  3. CYCLOPHOSPHAMIDE [Suspect]
     Indication: PRODUCT USED FOR UNKNOWN INDICATION
     Dosage: 5 G GRAM(S), UNK
     Route: 040
     Dates: start: 20121207, end: 20121208

REACTIONS (2)
  - Septic shock [Recovered/Resolved with Sequelae]
  - Bone marrow failure [Recovered/Resolved with Sequelae]
